FAERS Safety Report 24538459 (Version 1)
Quarter: 2024Q4

REPORT INFORMATION
  Report Type: Spontaneous
  Country: US (occurrence: None)
  Receive Date: 20241023
  Receipt Date: 20241023
  Transmission Date: 20250114
  Serious: No
  Sender: BANNER
  Company Number: US-PTA-005787

PATIENT
  Age: 63 Year
  Sex: Female

DRUGS (3)
  1. NAPROXEN [Suspect]
     Active Substance: NAPROXEN
     Indication: Tooth disorder
     Dosage: 2 DF, QD
     Route: 048
     Dates: start: 20240912, end: 20240913
  2. IBUPROFEN [Suspect]
     Active Substance: IBUPROFEN
  3. ADVIL [Suspect]
     Active Substance: IBUPROFEN

REACTIONS (4)
  - Tongue discomfort [Recovered/Resolved]
  - Product use in unapproved indication [Unknown]
  - Therapeutic response unexpected [Unknown]
  - Product counterfeit [Unknown]

NARRATIVE: CASE EVENT DATE: 20240912
